FAERS Safety Report 11110373 (Version 3)
Quarter: 2015Q3

REPORT INFORMATION
  Report Type: Spontaneous
  Country: US (occurrence: US)
  Receive Date: 20150513
  Receipt Date: 20150828
  Transmission Date: 20151125
  Serious: Yes (Other)
  Sender: FDA-Public Use
  Company Number: US-PFIZER INC-2015158547

PATIENT
  Age: 62 Year
  Sex: Female
  Weight: 59 kg

DRUGS (2)
  1. ESTRING [Suspect]
     Active Substance: ESTRADIOL
     Indication: VULVOVAGINAL DRYNESS
     Dosage: 2 MG (ONE RING), EVERY 3 MONTHS
     Dates: end: 201411
  2. ESTRING [Suspect]
     Active Substance: ESTRADIOL
     Dosage: 2 MG (ONE RING), EVERY 3 MONTHS
     Dates: start: 201505

REACTIONS (2)
  - Vaginal haemorrhage [Unknown]
  - Vulvovaginal discomfort [Unknown]
